FAERS Safety Report 7957242-8 (Version None)
Quarter: 2011Q4

REPORT INFORMATION
  Report Type: 
  Country: None (occurrence: None)
  Receive Date: 20111205
  Receipt Date: 20111130
  Transmission Date: 20120403
  Serious: Yes (Hospitalization)
  Sender: FDA-Public Use
  Company Number: US-GLAXOSMITHKLINE-A0956000A

PATIENT
  Age: 41 Year
  Sex: Female

DRUGS (3)
  1. ANTIBIOTICS [Concomitant]
  2. NICODERM CQ [Suspect]
     Indication: EX-TOBACCO USER
     Route: 062
     Dates: start: 20111123, end: 20111127
  3. ADVAIR DISKUS 100/50 [Concomitant]
     Indication: CHRONIC OBSTRUCTIVE PULMONARY DISEASE

REACTIONS (7)
  - ILL-DEFINED DISORDER [None]
  - TREMOR [None]
  - CHEST PAIN [None]
  - OXYGEN SATURATION DECREASED [None]
  - EXPIRED DRUG ADMINISTERED [None]
  - ANXIETY [None]
  - DYSPNOEA [None]
